FAERS Safety Report 24145814 (Version 1)
Quarter: 2024Q3

REPORT INFORMATION
  Report Type: Spontaneous
  Country: US (occurrence: US)
  Receive Date: 20240729
  Receipt Date: 20240729
  Transmission Date: 20241016
  Serious: Yes (Hospitalization)
  Sender: AMGEN
  Company Number: US-AMGEN-USASP2024145363

PATIENT
  Age: 74 Year
  Sex: Male
  Weight: 121 kg

DRUGS (1)
  1. IMLYGIC [Suspect]
     Active Substance: TALIMOGENE LAHERPAREPVEC
     Indication: Malignant melanoma stage III
     Dosage: 10^8 (100 MILLION) PFU PER ML (PER THE DOSING SCHEDULE)
     Route: 065
     Dates: start: 20240628

REACTIONS (4)
  - Mental status changes [Recovering/Resolving]
  - Hypoxia [Recovering/Resolving]
  - Confusional state [Recovering/Resolving]
  - Pyrexia [Recovering/Resolving]

NARRATIVE: CASE EVENT DATE: 20240628
